FAERS Safety Report 4666331-5 (Version None)
Quarter: 2005Q2

REPORT INFORMATION
  Report Type: 
  Country: None (occurrence: None)
  Receive Date: 20050518
  Receipt Date: 20050510
  Transmission Date: 20051028
  Serious: Yes (Other)
  Sender: FDA-Public Use
  Company Number: HQWYE731613MAY05

PATIENT
  Age: 42 Year
  Sex: Female
  Weight: 58.11 kg

DRUGS (1)
  1. ALAVERT [Suspect]
     Indication: URTICARIA
     Dosage: 1 TABLET, ONCE, ORAL
     Route: 048
     Dates: start: 20050508, end: 20050509

REACTIONS (4)
  - BLOOD PRESSURE INCREASED [None]
  - DRUG INTERACTION [None]
  - HEART RATE INCREASED [None]
  - PALPITATIONS [None]
